FAERS Safety Report 9612701 (Version 2)
Quarter: 2013Q4

REPORT INFORMATION
  Report Type: Spontaneous
  Country: JP (occurrence: JP)
  Receive Date: 20131010
  Receipt Date: 20131010
  Transmission Date: 20140711
  Serious: Yes (Other)
  Sender: FDA-Public Use
  Company Number: JP-SA-THYM-1004012

PATIENT
  Age: 32 Year
  Sex: Female
  Weight: 37 kg

DRUGS (7)
  1. ANTI-THYMOCYTE GLOBULIN (RABBIT) [Suspect]
     Indication: INTESTINE TRANSPLANT REJECTION
     Dosage: 1.8 UNK, UNK
     Route: 065
     Dates: start: 20130221, end: 20130302
  2. RITUXIMAB [Concomitant]
     Indication: PRODUCT USED FOR UNKNOWN INDICATION
     Dosage: UNK
     Route: 065
  3. PLASMA [Concomitant]
     Indication: PRODUCT USED FOR UNKNOWN INDICATION
     Dosage: UNK
     Route: 065
  4. TACROLIMUS [Concomitant]
     Indication: PRODUCT USED FOR UNKNOWN INDICATION
     Dosage: UNK
     Route: 065
     Dates: start: 20071016
  5. METHYLPREDNISOLONE [Concomitant]
     Indication: PRODUCT USED FOR UNKNOWN INDICATION
     Dosage: UNK
     Route: 065
     Dates: start: 20071016
  6. ADALIMUMAB [Concomitant]
     Indication: PRODUCT USED FOR UNKNOWN INDICATION
     Dosage: UNK
     Route: 065
     Dates: start: 20121212, end: 201302
  7. METHYLPREDNISOLONE SODIUM SUCCINATE [Concomitant]
     Indication: PRODUCT USED FOR UNKNOWN INDICATION
     Dosage: UNK
     Route: 065
     Dates: start: 20130220, end: 20130225

REACTIONS (5)
  - Device related infection [Unknown]
  - Urinary tract infection [Unknown]
  - Superior vena cava stenosis [Unknown]
  - Pleural effusion [Recovered/Resolved]
  - Platelet count decreased [Recovered/Resolved]
